FAERS Safety Report 5473102-9 (Version None)
Quarter: 2007Q3

REPORT INFORMATION
  Report Type: 
  Country: None (occurrence: None)
  Receive Date: 20070927
  Receipt Date: 20070911
  Transmission Date: 20080115
  Serious: Yes (Congenital Anomaly, Other)
  Sender: FDA-Public Use
  Company Number: DSA_27341_2005

PATIENT
  Sex: Male

DRUGS (1)
  1. ENALAPRIL MALEATE [Suspect]
     Indication: DRUG USE FOR UNKNOWN INDICATION
     Dosage: TRANSPLACENTAL
     Route: 064

REACTIONS (7)
  - BLOOD ERYTHROPOIETIN DECREASED [None]
  - BLOOD PRESSURE DECREASED [None]
  - DRUG EXPOSURE DURING PREGNANCY [None]
  - GLOMERULAR FILTRATION RATE ABNORMAL [None]
  - POLYCYTHAEMIA [None]
  - RED BLOOD CELL COUNT INCREASED [None]
  - RENAL FAILURE [None]
